FAERS Safety Report 11993008 (Version 1)
Quarter: 2016Q1

REPORT INFORMATION
  Report Type: Spontaneous
  Country: US (occurrence: None)
  Receive Date: 20160202
  Receipt Date: 20160202
  Transmission Date: 20160526
  Serious: No
  Sender: FDA-Public Use
  Company Number: None

PATIENT
  Age: 33 Year
  Sex: Female
  Weight: 57.61 kg

DRUGS (5)
  1. EXCEDRIN [Concomitant]
     Active Substance: ACETAMINOPHEN\ASPIRIN\CAFFEINE
  2. METHYLPRENDISOLONE 4 MG QUALITEST [Suspect]
     Active Substance: METHYLPREDNISOLONE
     Indication: EAR PAIN
     Dosage: 6 DAY TAPER, TAKEN BY MOUTH
     Dates: start: 20160131
  3. TOPIRAMATE. [Concomitant]
     Active Substance: TOPIRAMATE
  4. METHYLPRENDISOLONE 4 MG QUALITEST [Suspect]
     Active Substance: METHYLPREDNISOLONE
     Indication: PAIN IN JAW
     Dosage: 6 DAY TAPER, TAKEN BY MOUTH
     Dates: start: 20160131
  5. IBUPROFEN. [Concomitant]
     Active Substance: IBUPROFEN

REACTIONS (1)
  - Arthralgia [None]

NARRATIVE: CASE EVENT DATE: 20160131
